FAERS Safety Report 9803530 (Version 1)
Quarter: 2014Q1

REPORT INFORMATION
  Report Type: Spontaneous
  Country: US (occurrence: US)
  Receive Date: 20140108
  Receipt Date: 20140108
  Transmission Date: 20141002
  Serious: No
  Sender: FDA-Public Use
  Company Number: US-GLAXOSMITHKLINE-A1004894A

PATIENT
  Age: 62 Year
  Sex: Female

DRUGS (5)
  1. LOVAZA [Suspect]
     Indication: BLOOD TRIGLYCERIDES INCREASED
     Dosage: 2CAP TWICE PER DAY
     Route: 048
     Dates: start: 201206
  2. LIPITOR [Concomitant]
  3. BLOOD PRESSURE MEDICINES [Concomitant]
  4. METOPROLOL [Concomitant]
  5. VITAMIN D [Concomitant]

REACTIONS (4)
  - Dyspepsia [Unknown]
  - Faeces soft [Unknown]
  - Frequent bowel movements [Unknown]
  - Malaise [Unknown]
